FAERS Safety Report 6038912-8 (Version None)
Quarter: 2009Q1

REPORT INFORMATION
  Report Type: 
  Country: None (occurrence: None)
  Receive Date: 20090115
  Receipt Date: 20090113
  Transmission Date: 20090719
  Serious: Yes (Life-Threatening, Hospitalization)
  Sender: FDA-Public Use
  Company Number: US-JNJFOC-20090102368

PATIENT
  Age: 26 Year
  Sex: Female

DRUGS (6)
  1. ULTRAM [Suspect]
     Indication: DRUG USE FOR UNKNOWN INDICATION
     Dosage: UNKNOWN NUMNBER OF TABLETS TAKEN
     Route: 048
  2. ACETAMINOPHEN [Suspect]
     Route: 065
  3. ACETAMINOPHEN [Suspect]
     Indication: DRUG USE FOR UNKNOWN INDICATION
     Route: 065
  4. BARBITURATES [Suspect]
     Indication: DRUG USE FOR UNKNOWN INDICATION
     Route: 065
  5. METOCLOPRAMIDE [Concomitant]
  6. UNSPECIFIED ANTIDEPRESSANT [Concomitant]
     Indication: DRUG USE FOR UNKNOWN INDICATION
     Route: 065

REACTIONS (13)
  - BLOOD POTASSIUM DECREASED [None]
  - BUNDLE BRANCH BLOCK RIGHT [None]
  - CONVULSION [None]
  - DRUG ABUSE [None]
  - DRUG ABUSER [None]
  - DRUG SCREEN POSITIVE [None]
  - ELECTROCARDIOGRAM POOR R-WAVE PROGRESSION [None]
  - HYPOGLYCAEMIA [None]
  - HYPOTENSION [None]
  - MYDRIASIS [None]
  - OVERDOSE [None]
  - UNRESPONSIVE TO STIMULI [None]
  - VOMITING [None]
